FAERS Safety Report 10394714 (Version 1)
Quarter: 2014Q3

REPORT INFORMATION
  Report Type: Report from Study
  Country: US (occurrence: US)
  Receive Date: 20140820
  Receipt Date: 20140820
  Transmission Date: 20150326
  Serious: Yes (Other)
  Sender: FDA-Public Use
  Company Number: US-ROCHE-1452022

PATIENT
  Age: 72 Year
  Sex: Female

DRUGS (2)
  1. CELLCEPT [Suspect]
     Active Substance: MYCOPHENOLATE MOFETIL\MYCOPHENOLATE MOFETIL HYDROCHLORIDE
     Indication: GRANULOMATOSIS WITH POLYANGIITIS
     Route: 065
  2. CELLCEPT [Suspect]
     Active Substance: MYCOPHENOLATE MOFETIL\MYCOPHENOLATE MOFETIL HYDROCHLORIDE
     Indication: MICROSCOPIC POLYANGIITIS

REACTIONS (8)
  - Blood creatinine increased [Unknown]
  - Dyspnoea [Unknown]
  - Decreased appetite [Unknown]
  - Asthenia [Unknown]
  - Haematuria [Unknown]
  - Proteinuria [Unknown]
  - Fatigue [Unknown]
  - Glomerulonephritis [Unknown]
